FAERS Safety Report 14894696 (Version 5)
Quarter: 2018Q4

REPORT INFORMATION
  Report Type: Spontaneous
  Country: US (occurrence: ES)
  Receive Date: 20180515
  Receipt Date: 20181223
  Transmission Date: 20190204
  Serious: Yes (Other)
  Sender: FDA-Public Use
  Company Number: US-009507513-1805USA002859

PATIENT
  Age: 63 Year
  Sex: Male

DRUGS (5)
  1. FENTANYL. [Concomitant]
     Active Substance: FENTANYL
     Dosage: 200 MICROGRAM, EVERY 3 DAYS
     Route: 062
     Dates: start: 201501, end: 201606
  2. ZOLEDRONIC ACID [Concomitant]
     Active Substance: ZOLEDRONIC ACID
     Dosage: 4 MG, EVERY 28 DAYS
     Dates: start: 201502
  3. TEMODAR [Suspect]
     Active Substance: TEMOZOLOMIDE
     Indication: PARAGANGLION NEOPLASM MALIGNANT
     Dosage: 75 MG/M2/D, WITH A SCHEDULE OF 3 WEEKS ON TREATMENT FOLLOWED BY 1 WEEK OFF TREATMENT
     Dates: start: 201512, end: 201702
  4. TEMODAR [Suspect]
     Active Substance: TEMOZOLOMIDE
     Dosage: 75 MG/M2/D (3 WEEKS ON TREATMENT FOLLOWED BY 2 WEEKS OFF TREATMENT)
     Dates: start: 201703
  5. SOMATULINE AUTOGEL [Concomitant]
     Active Substance: LANREOTIDE ACETATE
     Dosage: 120 MG, EVERY 14 DAYS
     Dates: start: 201502

REACTIONS (2)
  - Lymphopenia [Unknown]
  - Off label use [Unknown]

NARRATIVE: CASE EVENT DATE: 201512
